FAERS Safety Report 5495482-0 (Version None)
Quarter: 2007Q4

REPORT INFORMATION
  Report Type: 
  Country: None (occurrence: None)
  Receive Date: 20071023
  Receipt Date: 20071009
  Transmission Date: 20080405
  Serious: Yes (Other)
  Sender: FDA-Public Use
  Company Number: 2007S1008614

PATIENT
  Age: 66 Year
  Sex: Female
  Weight: 79.3795 kg

DRUGS (6)
  1. FENTANYL TRANSDERMAL SYSTEM [Suspect]
     Indication: MUSCLE SPASMS
     Dosage: 75 UG/HR;EVERY 3 DAYS;TRANSDERMAL
     Route: 062
     Dates: start: 20050101
  2. FENTANYL TRANSDERMAL SYSTEM [Suspect]
     Indication: SPINAL FRACTURE
     Dosage: 75 UG/HR;EVERY 3 DAYS;TRANSDERMAL
     Route: 062
     Dates: start: 20050101
  3. FLEXERIL [Concomitant]
  4. XANAX [Concomitant]
  5. CELEXA [Concomitant]
  6. TYLENOL WITH CODEIN #4 [Concomitant]

REACTIONS (5)
  - CONFUSIONAL STATE [None]
  - DRUG DEPENDENCE [None]
  - DRUG EFFECT INCREASED [None]
  - NERVOUSNESS [None]
  - TREMOR [None]
